FAERS Safety Report 7899308-7 (Version None)
Quarter: 2011Q4

REPORT INFORMATION
  Report Type: 
  Country: None (occurrence: None)
  Receive Date: 20111107
  Receipt Date: 20110913
  Transmission Date: 20120403
  Serious: No
  Sender: FDA-Public Use
  Company Number: US-AMGEN-USASP2011046974

PATIENT
  Sex: Male

DRUGS (1)
  1. ENBREL [Suspect]
     Indication: PSORIASIS
     Dosage: 50 MG, 2 TIMES/WK
     Dates: start: 20110824

REACTIONS (5)
  - PAIN IN JAW [None]
  - INJECTION SITE PAIN [None]
  - TOOTHACHE [None]
  - HEADACHE [None]
  - EAR PAIN [None]
